FAERS Safety Report 16970648 (Version 1)
Quarter: 2019Q4

REPORT INFORMATION
  Report Type: Spontaneous
  Country: FR (occurrence: FR)
  Receive Date: 20191029
  Receipt Date: 20191029
  Transmission Date: 20200122
  Serious: Yes (Hospitalization)
  Sender: FDA-Public Use
  Company Number: FR-009507513-1910FRA014777

PATIENT
  Age: 71 Year
  Sex: Male

DRUGS (7)
  1. LEVOTHYROX [Concomitant]
     Active Substance: LEVOTHYROXINE
  2. TAMSULOSIN HYDROCHLORIDE. [Concomitant]
     Active Substance: TAMSULOSIN HYDROCHLORIDE
  3. PANTOPRAZOLE [Concomitant]
     Active Substance: PANTOPRAZOLE
  4. VANCOMYCIN MYLAN [Suspect]
     Active Substance: VANCOMYCIN
     Indication: CLOSTRIDIUM COLITIS
     Dosage: 2000 MILLIGRAM
     Route: 048
     Dates: start: 20190927, end: 20191006
  5. INVANZ [Suspect]
     Active Substance: ERTAPENEM SODIUM
     Indication: UROGENITAL INFECTION BACTERIAL
     Route: 042
     Dates: start: 20190930, end: 20191006
  6. PENTASA [Concomitant]
     Active Substance: MESALAMINE
  7. TARDYFERON [Concomitant]
     Active Substance: FERROUS SULFATE

REACTIONS (3)
  - Rash [Recovering/Resolving]
  - Cheilitis [Recovering/Resolving]
  - Pyrexia [Recovered/Resolved]

NARRATIVE: CASE EVENT DATE: 20191006
